FAERS Safety Report 15319454 (Version 1)
Quarter: 2018Q3

REPORT INFORMATION
  Report Type: Spontaneous
  Country: US (occurrence: US)
  Receive Date: 20180827
  Receipt Date: 20180827
  Transmission Date: 20181010
  Serious: No
  Sender: FDA-Public Use
  Company Number: US-BIOGEN-2016BI00261939

PATIENT
  Sex: Female

DRUGS (1)
  1. AVONEX [Suspect]
     Active Substance: INTERFERON BETA-1A
     Indication: MULTIPLE SCLEROSIS
     Route: 030
     Dates: start: 19990322, end: 20180701

REACTIONS (10)
  - Fear [Unknown]
  - Frustration tolerance decreased [Unknown]
  - Palpitations [Recovered/Resolved]
  - Anxiety [Unknown]
  - Throat irritation [Unknown]
  - Confusional state [Unknown]
  - Myalgia [Recovered/Resolved]
  - Abdominal discomfort [Recovered/Resolved]
  - Adverse reaction [Recovered/Resolved]
  - Malaise [Recovered/Resolved]
